FAERS Safety Report 20704759 (Version 5)
Quarter: 2022Q3

REPORT INFORMATION
  Report Type: Other
  Country: US (occurrence: None)
  Receive Date: 20220413
  Receipt Date: 20220725
  Transmission Date: 20221027
  Serious: Yes (Life-Threatening, Hospitalization)
  Sender: FDA-Public Use
  Company Number: US-ROCHE-3072185

PATIENT
  Age: 52 Year
  Sex: Female

DRUGS (25)
  1. OCRELIZUMAB [Suspect]
     Active Substance: OCRELIZUMAB
     Indication: Multiple sclerosis
     Dosage: SECOND DOSE IN TWO WEEKS, THEN EVERY 6 MONTHS.
     Route: 065
     Dates: start: 20201228
  2. OCRELIZUMAB [Suspect]
     Active Substance: OCRELIZUMAB
     Route: 065
     Dates: start: 20210118
  3. ELAVIL [AMITRIPTYLINE] [Concomitant]
     Dates: start: 2008
  4. TOPIRAMATE [Concomitant]
     Active Substance: TOPIRAMATE
     Indication: Prophylaxis
     Dates: start: 20130509
  5. INSULIN NOS [Concomitant]
     Active Substance: INSULIN NOS
     Dates: start: 1985
  6. ATORVASTATIN [Concomitant]
     Active Substance: ATORVASTATIN
     Dates: start: 20110906, end: 20210923
  7. ASPIRIN [Concomitant]
     Active Substance: ASPIRIN
     Dates: start: 200806
  8. MINOCYCLINE [Concomitant]
     Active Substance: MINOCYCLINE HYDROCHLORIDE
     Indication: Prophylaxis
     Dates: start: 2013
  9. EMGALITY [Concomitant]
     Active Substance: GALCANEZUMAB-GNLM
     Indication: Prophylaxis
     Dates: start: 201909
  10. BAQSIMI [Concomitant]
     Active Substance: GLUCAGON
     Dates: start: 201911
  11. IBUPROFEN [Concomitant]
     Active Substance: IBUPROFEN
     Dates: start: 20200205
  12. LANTUS [Concomitant]
     Active Substance: INSULIN GLARGINE
     Indication: Adverse event
     Dates: start: 20210822
  13. LACTATED RINGERS SOLUTION [Concomitant]
     Active Substance: CALCIUM CHLORIDE\POTASSIUM CHLORIDE\SODIUM CHLORIDE\SODIUM LACTATE
     Indication: Adverse event
     Dates: start: 20210822, end: 202108
  14. HUMALOG [Concomitant]
     Active Substance: INSULIN LISPRO
     Indication: Adverse event
     Dates: start: 20210822
  15. IRON [Concomitant]
     Active Substance: IRON
     Indication: Iron deficiency
     Dates: start: 20210824, end: 20210824
  16. CEFTAZIDIME [Concomitant]
     Active Substance: CEFTAZIDIME
     Indication: Adverse event
     Dates: start: 20211223, end: 20211225
  17. AMPICILLIN [Concomitant]
     Active Substance: AMPICILLIN
     Indication: Adverse event
     Dates: start: 20211223, end: 202112
  18. BACTRIM [Concomitant]
     Active Substance: SULFAMETHOXAZOLE\TRIMETHOPRIM
     Indication: Adverse event
     Dates: start: 20211226, end: 20211230
  19. LEVOFLOXACIN [Concomitant]
     Active Substance: LEVOFLOXACIN
     Indication: Adverse event
     Dates: start: 20220318, end: 20220321
  20. LEVAQUIN [Concomitant]
     Active Substance: LEVOFLOXACIN
     Indication: Adverse event
     Dates: start: 20220322, end: 20220405
  21. PREDNISONE [Concomitant]
     Active Substance: PREDNISONE
     Indication: Adverse event
     Dates: start: 20220321, end: 20220323
  22. OMEPRAZOLE [Concomitant]
     Active Substance: OMEPRAZOLE
     Dates: start: 20211117
  23. ROSUVASTATIN CALCIUM [Concomitant]
     Active Substance: ROSUVASTATIN CALCIUM
     Dates: start: 20210924
  24. CEFPODOXIME PROXETIL [Concomitant]
     Active Substance: CEFPODOXIME PROXETIL
     Indication: Urinary tract infection
     Dates: start: 20220412, end: 20220418
  25. SULFAMETHOXAZOLE\TRIMETHOPRIM [Concomitant]
     Active Substance: SULFAMETHOXAZOLE\TRIMETHOPRIM
     Indication: Urinary tract infection
     Dates: start: 20220412, end: 20220418

REACTIONS (2)
  - Urosepsis [Recovered/Resolved]
  - Nephrolithiasis [Recovered/Resolved]

NARRATIVE: CASE EVENT DATE: 20220318
